FAERS Safety Report 10451859 (Version 2)
Quarter: 2014Q4

REPORT INFORMATION
  Report Type: Report from Study
  Country: US (occurrence: US)
  Receive Date: 20140915
  Receipt Date: 20141222
  Transmission Date: 20150528
  Serious: Yes (Other)
  Sender: FDA-Public Use
  Company Number: US-BIOGENIDEC-2014BI093900

PATIENT
  Age: 37 Year
  Sex: Female

DRUGS (7)
  1. PHENERGAN [Concomitant]
     Active Substance: PROMETHAZINE HYDROCHLORIDE
  2. TECFIDERA [Suspect]
     Active Substance: DIMETHYL FUMARATE
     Indication: MULTIPLE SCLEROSIS
     Route: 048
     Dates: start: 201406
  3. VITAMIN D [Concomitant]
     Active Substance: CHOLECALCIFEROL
  4. PREVACID [Concomitant]
     Active Substance: LANSOPRAZOLE
  5. NEURONTIN [Concomitant]
     Active Substance: GABAPENTIN
  6. ZOFRAN [Concomitant]
     Active Substance: ONDANSETRON HYDROCHLORIDE
  7. MELATONIN [Concomitant]
     Active Substance: MELATONIN

REACTIONS (6)
  - Diarrhoea [Unknown]
  - Vomiting [Not Recovered/Not Resolved]
  - Weight decreased [Unknown]
  - Pyrexia [Unknown]
  - Fatigue [Unknown]
  - Nausea [Not Recovered/Not Resolved]

NARRATIVE: CASE EVENT DATE: 201406
